FAERS Safety Report 26212336 (Version 1)
Quarter: 2025Q4

REPORT INFORMATION
  Report Type: Report from Study
  Country: US (occurrence: None)
  Receive Date: 20251230
  Receipt Date: 20251230
  Transmission Date: 20260117
  Serious: Yes (Other)
  Sender: UCB
  Company Number: US-UCBSA-2025082583

PATIENT
  Age: 40 Year
  Weight: 101.6 kg

DRUGS (1)
  1. FENFLURAMINE [Suspect]
     Active Substance: FENFLURAMINE
     Indication: Product used for unknown indication
     Dosage: 26 MILLIGRAM PER DAY

REACTIONS (3)
  - Mitral valve calcification [Unknown]
  - Mitral valve thickening [Unknown]
  - Tricuspid valve thickening [Unknown]
